FAERS Safety Report 24157550 (Version 1)
Quarter: 2024Q3

REPORT INFORMATION
  Report Type: Spontaneous
  Country: US (occurrence: US)
  Receive Date: 20240731
  Receipt Date: 20240731
  Transmission Date: 20241017
  Serious: No
  Sender: AMGEN
  Company Number: US-AMGEN-USASP2024150442

PATIENT
  Age: 60 Year
  Sex: Male

DRUGS (2)
  1. BLINCYTO [Suspect]
     Active Substance: BLINATUMOMAB
     Indication: Acute lymphocytic leukaemia
     Dosage: 28 MICROGRAM, DOSE REQUESTED: 35 MCG
     Route: 065
  2. BLINCYTO [Suspect]
     Active Substance: BLINATUMOMAB
     Dosage: UNK, REDUCED DOSE
     Route: 065
     Dates: start: 202406

REACTIONS (1)
  - Neurological symptom [Unknown]

NARRATIVE: CASE EVENT DATE: 20240608
